FAERS Safety Report 10160320 (Version 1)
Quarter: 2014Q2

REPORT INFORMATION
  Report Type: Spontaneous
  Country: US (occurrence: US)
  Receive Date: 20140508
  Receipt Date: 20140508
  Transmission Date: 20141212
  Serious: Yes (Disabling, Other)
  Sender: FDA-Public Use
  Company Number: US-GLAXOSMITHKLINE-A1071212A

PATIENT
  Age: 56 Year
  Sex: Female

DRUGS (3)
  1. LAMICTAL [Suspect]
     Indication: CONVULSION
     Dosage: 300MG PER DAY
     Route: 048
     Dates: start: 2001, end: 2007
  2. LAMOTRIGINE [Suspect]
     Indication: CONVULSION
     Dosage: 100MG PER DAY
     Route: 048
     Dates: start: 2007
  3. YELLOW FEVER VACCINES (NON-GSK) [Suspect]
     Indication: PROPHYLAXIS
     Route: 065

REACTIONS (2)
  - Deafness unilateral [Not Recovered/Not Resolved]
  - Adverse event [Unknown]
